FAERS Safety Report 7005455-4 (Version None)
Quarter: 2010Q3

REPORT INFORMATION
  Report Type: 
  Country: None (occurrence: None)
  Receive Date: 20100921
  Receipt Date: 20100914
  Transmission Date: 20110219
  Serious: Yes (Other)
  Sender: FDA-Public Use
  Company Number: US-ROCHE-727413

PATIENT
  Age: 65 Year
  Sex: Female

DRUGS (10)
  1. AVASTIN [Suspect]
     Route: 065
  2. ABRAXANE [Suspect]
     Route: 065
  3. CYCLOPHOSPHAMIDE [Concomitant]
  4. METHOTREXATE [Concomitant]
  5. FLUOROURACIL [Concomitant]
  6. CAPECITABINE [Concomitant]
  7. GEMCITABINE [Concomitant]
  8. VINORELBINE [Concomitant]
  9. DOXORUBICIN HCL [Concomitant]
  10. ANTHRACYCLINE NOS [Concomitant]
     Dosage: WEEKLY FREQUENCY.

REACTIONS (2)
  - MACULAR OEDEMA [None]
  - PROTEINURIA [None]
